FAERS Safety Report 12408331 (Version 1)
Quarter: 2016Q2

REPORT INFORMATION
  Report Type: Spontaneous
  Country: FR (occurrence: FR)
  Receive Date: 20160526
  Receipt Date: 20160526
  Transmission Date: 20160815
  Serious: Yes (Hospitalization)
  Sender: FDA-Public Use
  Company Number: FR-BAYER-2014-134677

PATIENT
  Age: 84 Year
  Sex: Male

DRUGS (11)
  1. LASILIX [Concomitant]
     Active Substance: FUROSEMIDE
     Dosage: UNK
  2. FORTUM [Concomitant]
     Active Substance: CEFTAZIDIME
     Dosage: UNK
  3. BRICANYL [Concomitant]
     Active Substance: TERBUTALINE SULFATE
     Dosage: UNK
  4. VANCOMYCIN [Suspect]
     Active Substance: VANCOMYCIN
     Dosage: UNK
     Dates: start: 20140522, end: 20140526
  5. CIFLOX [Suspect]
     Active Substance: CIPROFLOXACIN
     Indication: INFLAMMATION
     Dosage: 2 DF, QD
     Route: 048
     Dates: start: 20140513, end: 20140521
  6. CIFLOX [Suspect]
     Active Substance: CIPROFLOXACIN
     Indication: INFLAMMATION
     Dosage: 2 DF, QD
     Route: 048
     Dates: start: 20140607, end: 20140608
  7. PREVISCAN [Concomitant]
     Active Substance: FLUINDIONE
     Dosage: 10 MG, QD
  8. LOXEN [Suspect]
     Active Substance: NICARDIPINE HYDROCHLORIDE
     Dosage: UNK
  9. SOLUPRED [PREDNISOLONE] [Concomitant]
     Active Substance: PREDNISOLONE
     Dosage: UNK
  10. OMEPRAZOLE. [Concomitant]
     Active Substance: OMEPRAZOLE
     Dosage: UNK
  11. CALCIPARINE [Concomitant]
     Active Substance: HEPARIN CALCIUM
     Dosage: UNK

REACTIONS (4)
  - Eye pain [Recovered/Resolved]
  - Petechiae [Recovered/Resolved]
  - Linear IgA disease [Recovered/Resolved]
  - Dermatitis bullous [Recovered/Resolved]

NARRATIVE: CASE EVENT DATE: 20140607
